FAERS Safety Report 25874460 (Version 1)
Quarter: 2025Q4

REPORT INFORMATION
  Report Type: Spontaneous
  Country: US (occurrence: None)
  Receive Date: 20251002
  Receipt Date: 20251002
  Transmission Date: 20260118
  Serious: No
  Sender: FDA-CTU
  Company Number: None

PATIENT
  Age: 32 Year
  Sex: Female

DRUGS (1)
  1. DUPIXENT [Suspect]
     Active Substance: DUPILUMAB
     Indication: Prurigo
     Dosage: 300 MG EVERY OTHER WEEK SUBCUTANEOUS ?
     Route: 058
     Dates: start: 20250420, end: 20251002

REACTIONS (2)
  - Dry skin [None]
  - Pruritus [None]

NARRATIVE: CASE EVENT DATE: 20250601
